FAERS Safety Report 8846006 (Version 2)
Quarter: 2012Q4

REPORT INFORMATION
  Report Type: 
  Country: DE (occurrence: DE)
  Receive Date: 20121017
  Receipt Date: 20121212
  Transmission Date: 20130627
  Serious: Yes (Other)
  Sender: FDA-Public Use
  Company Number: DE-ROCHE-1146033

PATIENT
  Sex: Male

DRUGS (12)
  1. RITUXIMAB [Suspect]
     Indication: NON-HODGKIN^S LYMPHOMA
     Route: 065
     Dates: start: 20120619
  2. CYCLOPHOSPHAMID [Suspect]
     Indication: NON-HODGKIN^S LYMPHOMA
     Route: 065
  3. VINCRISTIN [Suspect]
     Indication: NON-HODGKIN^S LYMPHOMA
     Route: 065
  4. PREDNISOLON [Suspect]
     Indication: NON-HODGKIN^S LYMPHOMA
     Route: 065
  5. DOXORUBICIN [Suspect]
     Indication: LYMPHOMA
     Route: 065
  6. SOLU-DECORTIN [Concomitant]
  7. FENISTIL [Concomitant]
  8. FILGRASTIM [Concomitant]
  9. OMEPRAZOL [Concomitant]
  10. ALLOPURINOL [Concomitant]
  11. ONDANSETRON [Concomitant]
  12. PARACETAMOL [Concomitant]

REACTIONS (1)
  - Thrombosis [Recovered/Resolved]
